FAERS Safety Report 6090744-0 (Version None)
Quarter: 2009Q1

REPORT INFORMATION
  Report Type: 
  Country: None (occurrence: None)
  Receive Date: 20090224
  Receipt Date: 20090202
  Transmission Date: 20090719
  Serious: No
  Sender: FDA-Public Use
  Company Number: US-ABBOTT-09P-163-0501439-00

PATIENT
  Sex: Male
  Weight: 81.72 kg

DRUGS (4)
  1. SIMCOR [Suspect]
     Indication: BLOOD CHOLESTEROL INCREASED
     Dosage: 500/12.5 MG DAILY
     Route: 048
     Dates: start: 20081101
  2. PLAVIX [Concomitant]
     Indication: STENT PLACEMENT
     Route: 048
  3. COREG [Concomitant]
     Indication: HYPERTENSION
     Route: 048
  4. ASPIRIN [Concomitant]
     Indication: ANTICOAGULANT THERAPY
     Route: 048

REACTIONS (2)
  - FACIAL SPASM [None]
  - FLUSHING [None]
